FAERS Safety Report 10025244 (Version 4)
Quarter: 2015Q1

REPORT INFORMATION
  Report Type: Spontaneous
  Country: BR (occurrence: None)
  Receive Date: 20140218
  Receipt Date: 20150223
  Transmission Date: 20150720
  Serious: Yes (Other)
  Sender: FDA-Public Use
  Company Number: KAD201401-000111

PATIENT
  Age: 58 Year
  Sex: Female

DRUGS (9)
  1. ENALAPRIL (ENALAPRIL MALEATE) [Concomitant]
  2. RIBAVIRIN (RIBAVIRIN) [Suspect]
     Active Substance: RIBAVIRIN
     Indication: CHRONIC HEPATITIS C
     Route: 048
     Dates: start: 20131127, end: 20140114
  3. BMS-914143-01 (PEGINTERFERON ALFA-2A) [Suspect]
     Active Substance: PEGINTERFERON ALFA-2A
     Indication: CHRONIC HEPATITIS C
     Route: 058
     Dates: start: 20131127, end: 20140114
  4. GLIBENCLAMIDE [Concomitant]
     Active Substance: GLYBURIDE
  5. BMS 914143 [Suspect]
     Active Substance: PEGINTERFERON LAMBDA-1A
     Indication: CHRONIC HEPATITIS C
     Route: 058
     Dates: start: 20131127, end: 20140114
  6. DEXCHLORPHENIRAMINE [Concomitant]
     Active Substance: DEXCHLORPHENIRAMINE
  7. TELAPREVIR [Suspect]
     Active Substance: TELAPREVIR
     Indication: CHRONIC HEPATITIS C
     Route: 048
     Dates: start: 20131127, end: 20140114
  8. BROMOPRIDE [Concomitant]
     Active Substance: BROMOPRIDE
  9. METFORMIN [Concomitant]
     Active Substance: METFORMIN HYDROCHLORIDE
     Dates: start: 2003

REACTIONS (11)
  - Haemoglobin decreased [None]
  - Blood creatinine increased [None]
  - Jaundice [None]
  - Blood albumin decreased [None]
  - Aspartate aminotransferase increased [None]
  - Gamma-glutamyltransferase increased [None]
  - Band neutrophil percentage decreased [None]
  - Haematocrit decreased [None]
  - Hyperbilirubinaemia [None]
  - Alanine aminotransferase increased [None]
  - Blood lactate dehydrogenase increased [None]

NARRATIVE: CASE EVENT DATE: 20140107
